FAERS Safety Report 6539557-3 (Version None)
Quarter: 2010Q1

REPORT INFORMATION
  Report Type: 
  Country: None (occurrence: None)
  Receive Date: 20100115
  Receipt Date: 20100115
  Transmission Date: 20100710
  Serious: Yes (Death)
  Sender: FDA-Public Use
  Company Number: B0625320A

PATIENT
  Sex: Male
  Weight: 100 kg

DRUGS (2)
  1. ZANAMIVIR [Suspect]
     Indication: INFLUENZA
     Dosage: 600MG VARIABLE DOSE
     Dates: start: 20100108, end: 20100109
  2. INTUBATION [Concomitant]
     Indication: ACUTE RESPIRATORY DISTRESS SYNDROME
     Dates: start: 20100101, end: 20100101

REACTIONS (2)
  - ACUTE RESPIRATORY DISTRESS SYNDROME [None]
  - CARDIO-RESPIRATORY ARREST [None]
